FAERS Safety Report 4903686-8 (Version None)
Quarter: 2006Q1

REPORT INFORMATION
  Report Type: 
  Country: None (occurrence: None)
  Receive Date: 20060208
  Receipt Date: 20060131
  Transmission Date: 20060701
  Serious: Yes (Other)
  Sender: FDA-Public Use
  Company Number: PHEH2006US01545

PATIENT
  Age: 3 Year
  Sex: Male

DRUGS (1)
  1. TRILEPTAL [Suspect]
     Dosage: 10 MG/KG

REACTIONS (3)
  - CONJUNCTIVITIS [None]
  - RASH [None]
  - URINARY RETENTION [None]
